FAERS Safety Report 4978979-9 (Version None)
Quarter: 2006Q2

REPORT INFORMATION
  Report Type: 
  Country: None (occurrence: None)
  Receive Date: 20060421
  Receipt Date: 20060411
  Transmission Date: 20061013
  Serious: Yes (Other)
  Sender: FDA-Public Use
  Company Number: PHBS2006DK05398

PATIENT
  Age: 30 Year
  Sex: Male
  Weight: 74 kg

DRUGS (6)
  1. CLOZAPINE [Suspect]
     Indication: SCHIZOPHRENIA
     Dosage: 25 MG/D
     Route: 048
     Dates: start: 20051219, end: 20060117
  2. KALETRA [Suspect]
     Indication: HIV INFECTION
     Dosage: 3 DF, BID
     Route: 048
     Dates: start: 20050927, end: 20060117
  3. KALETRA [Suspect]
     Route: 048
     Dates: start: 20060202
  4. COMBIVIR [Concomitant]
     Route: 065
     Dates: start: 20050927, end: 20060117
  5. ZYPREXA [Concomitant]
     Route: 065
     Dates: start: 20010101, end: 20060117
  6. NITRAZEPAM [Concomitant]
     Route: 065
     Dates: start: 20041001, end: 20060117

REACTIONS (7)
  - ALANINE AMINOTRANSFERASE INCREASED [None]
  - ASPARTATE AMINOTRANSFERASE INCREASED [None]
  - DIZZINESS [None]
  - DRUG INTERACTION [None]
  - FATIGUE [None]
  - LIVER DISORDER [None]
  - MUSCLE CONTRACTIONS INVOLUNTARY [None]
